FAERS Safety Report 7351294-4 (Version None)
Quarter: 2011Q1

REPORT INFORMATION
  Report Type: 
  Country: None (occurrence: None)
  Receive Date: 20110314
  Receipt Date: 20110307
  Transmission Date: 20110831
  Serious: Yes (Other)
  Sender: FDA-Public Use
  Company Number: US-MYLANLABS-2011S1004490

PATIENT
  Age: 58 Year
  Sex: Male
  Weight: 68.95 kg

DRUGS (1)
  1. PHENYTOIN SODIUM CAP [Suspect]
     Indication: CONVULSION
     Route: 048
     Dates: end: 20090101

REACTIONS (2)
  - STEVENS-JOHNSON SYNDROME [None]
  - PROSTATE CANCER [None]
